FAERS Safety Report 6059684-7 (Version None)
Quarter: 2009Q1

REPORT INFORMATION
  Report Type: 
  Country: None (occurrence: None)
  Receive Date: 20090130
  Receipt Date: 20090127
  Transmission Date: 20090719
  Serious: Yes (Other)
  Sender: FDA-Public Use
  Company Number: US-PFIZER INC-2009161642

PATIENT
  Sex: Female
  Weight: 64 kg

DRUGS (6)
  1. CADUET [Suspect]
     Indication: BLOOD CHOLESTEROL INCREASED
     Dosage: 5 MG/10 MG ONCE DAILY
     Route: 048
     Dates: start: 20040101
  2. CADUET [Suspect]
     Indication: HYPERTENSION
  3. HYZAAR [Concomitant]
     Dosage: UNK
     Route: 048
  4. PLAVIX [Concomitant]
     Dosage: UNK
     Route: 048
  5. METOPROLOL [Concomitant]
     Dosage: UNK
     Route: 048
  6. CLONIDINE HCL [Concomitant]
     Dosage: UNK
     Route: 048

REACTIONS (3)
  - CHRONIC OBSTRUCTIVE PULMONARY DISEASE [None]
  - COUGH [None]
  - VASCULAR OCCLUSION [None]
